FAERS Safety Report 10586699 (Version 1)
Quarter: 2014Q4

REPORT INFORMATION
  Report Type: Spontaneous
  Country: US (occurrence: None)
  Receive Date: 20141114
  Receipt Date: 20141114
  Transmission Date: 20150529
  Serious: Yes (Hospitalization)
  Sender: FDA-Public Use
  Company Number: None

PATIENT
  Age: 5 Year
  Sex: Female
  Weight: 20 kg

DRUGS (9)
  1. AFINITOR [Suspect]
     Active Substance: EVEROLIMUS
     Indication: SEIZURE
     Dosage: 1 PILL QD ORAL
     Route: 048
  2. CLONAZEPAM. [Concomitant]
     Active Substance: CLONAZEPAM
  3. MINALAX [Concomitant]
  4. PREVACID [Concomitant]
     Active Substance: LANSOPRAZOLE
  5. LAMICTAL [Concomitant]
     Active Substance: LAMOTRIGINE
  6. MULTIVITAMIN [Concomitant]
     Active Substance: VITAMINS
  7. RANITIDINE [Concomitant]
     Active Substance: RANITIDINE\RANITIDINE HYDROCHLORIDE
  8. VIMPAT [Concomitant]
     Active Substance: LACOSAMIDE
  9. ZONISAMIDE. [Concomitant]
     Active Substance: ZONISAMIDE

REACTIONS (3)
  - Mouth ulceration [None]
  - Seizure [None]
  - Drug level decreased [None]

NARRATIVE: CASE EVENT DATE: 20141112
